FAERS Safety Report 9539020 (Version 1)
Quarter: 2013Q2

REPORT INFORMATION
  Report Type: Spontaneous
  Country: US (occurrence: None)
  Receive Date: 20130521
  Receipt Date: 20130521
  Transmission Date: 20140414
  Serious: No
  Sender: FDA-Public Use
  Company Number: 1000042834

PATIENT
  Age: 74 Year
  Sex: Female

DRUGS (8)
  1. TUDORZA PRESSAIR [Suspect]
     Indication: CHRONIC OBSTRUCTIVE PULMONARY DISEASE
     Dosage: RESPIRATORY
     Route: 055
     Dates: start: 20130208, end: 20130208
  2. TUDORZA PRESSAIR [Suspect]
     Indication: CHRONIC OBSTRUCTIVE PULMONARY DISEASE
     Dosage: RESPIRATORY
     Route: 055
     Dates: start: 20130212, end: 20130218
  3. SPIRIVA [Suspect]
     Indication: CHRONIC OBSTRUCTIVE PULMONARY DISEASE
     Dates: start: 20130219
  4. SYMBICORT (BUDESONIDE W/ FORMOTEROL FUMARATE) (BUDESONIDE W/ FORMOTEROL FUMARATE) [Concomitant]
  5. XOPENEX (LEVOSALBUTAMOL HYDROCHLORIDE) (LEVOSALBUTAMOL HYDROCHLORIDE) [Concomitant]
  6. DIOVAN (VALSARTAN) (VALSARTAN0 [Concomitant]
  7. ASPIRIN (ACETYLSALYCYLIC ACID) (ACETYLSALICYLIC ACID) [Concomitant]
  8. XANAX [Concomitant]

REACTIONS (1)
  - Myalgia [None]
